FAERS Safety Report 20066319 (Version 2)
Quarter: 2021Q4

REPORT INFORMATION
  Report Type: Spontaneous
  Country: CN (occurrence: CN)
  Receive Date: 20211114
  Receipt Date: 20211202
  Transmission Date: 20220303
  Serious: Yes (Hospitalization)
  Sender: FDA-Public Use
  Company Number: CN-ABBVIE-21K-035-4154393-00

PATIENT
  Age: 34 Year
  Sex: Female

DRUGS (3)
  1. HUMIRA [Suspect]
     Active Substance: ADALIMUMAB
     Indication: Palmoplantar pustulosis
     Route: 058
     Dates: start: 20210512, end: 20210512
  2. HUMIRA [Suspect]
     Active Substance: ADALIMUMAB
     Route: 058
     Dates: start: 20210519, end: 20210519
  3. HUMIRA [Suspect]
     Active Substance: ADALIMUMAB
     Route: 058
     Dates: start: 20210602, end: 20210602

REACTIONS (35)
  - Lung disorder [Recovering/Resolving]
  - SAPHO syndrome [Recovering/Resolving]
  - Hyperplasia [Recovering/Resolving]
  - Pyelocaliectasis [Recovering/Resolving]
  - Pulmonary mass [Recovering/Resolving]
  - Renal disorder [Recovering/Resolving]
  - Pleural effusion [Recovering/Resolving]
  - Lymphadenopathy [Recovering/Resolving]
  - Pneumonia [Recovered/Resolved]
  - Pulmonary granuloma [Recovering/Resolving]
  - Chest pain [Recovering/Resolving]
  - Pulmonary fibrosis [Recovering/Resolving]
  - Urticaria [Recovering/Resolving]
  - Dermatitis [Recovering/Resolving]
  - Off label use [Unknown]
  - Alopecia [Recovering/Resolving]
  - Hypogonadism [Recovering/Resolving]
  - Ear pain [Recovered/Resolved]
  - Pharyngitis [Recovered/Resolved]
  - Epistaxis [Recovered/Resolved]
  - Oropharyngeal pain [Recovering/Resolving]
  - Nasal congestion [Recovering/Resolving]
  - Facial pain [Recovering/Resolving]
  - Rash [Recovering/Resolving]
  - Pustule [Recovering/Resolving]
  - Urticaria [Recovering/Resolving]
  - Arthralgia [Recovering/Resolving]
  - Joint swelling [Recovering/Resolving]
  - Nasal congestion [Recovering/Resolving]
  - Tonsillar hypertrophy [Recovering/Resolving]
  - Nasal septum deviation [Recovering/Resolving]
  - Otorrhoea [Recovering/Resolving]
  - Bone density decreased [Recovering/Resolving]
  - Streptococcal infection [Recovering/Resolving]
  - Therapeutic product effect incomplete [Recovering/Resolving]

NARRATIVE: CASE EVENT DATE: 20210101
